FAERS Safety Report 7966920-6 (Version None)
Quarter: 2011Q4

REPORT INFORMATION
  Report Type: 
  Country: None (occurrence: None)
  Receive Date: 20111209
  Receipt Date: 20111206
  Transmission Date: 20120403
  Serious: Yes (Other)
  Sender: FDA-Public Use
  Company Number: BR-PFIZER INC-2011297548

PATIENT
  Age: 40 Year
  Sex: Female

DRUGS (3)
  1. ZOLOFT [Suspect]
  2. ZOLOFT [Suspect]
     Indication: ANXIETY
     Dosage: 50 MG, UNK
     Route: 048
     Dates: start: 20111130, end: 20111130
  3. INDERAL [Concomitant]
     Indication: ARRHYTHMIA
     Dosage: 10 MG, UNK

REACTIONS (1)
  - DYSENTERY [None]
